FAERS Safety Report 8064723-8 (Version None)
Quarter: 2012Q1

REPORT INFORMATION
  Report Type: 
  Country: None (occurrence: None)
  Receive Date: 20120123
  Receipt Date: 20120111
  Transmission Date: 20120608
  Serious: Yes (Hospitalization, Other)
  Sender: FDA-Public Use
  Company Number: US-ELI_LILLY_AND_COMPANY-US201111005377

PATIENT
  Sex: Female

DRUGS (13)
  1. SIMVASTATIN [Concomitant]
     Dosage: UNK, QD
  2. VITAMIN B-12 [Concomitant]
  3. CALCIUM [Concomitant]
     Dosage: 600 MG, UNKNOWN
  4. FORTEO [Suspect]
     Dosage: 20 UG, QD
     Route: 065
  5. ASPIRIN [Concomitant]
  6. FORTEO [Suspect]
     Dosage: 20 UG, QD
     Route: 065
  7. BISOPROLOL FUMARATE [Concomitant]
     Dosage: 0.5 MG, QD
  8. PREDNISONE [Concomitant]
     Dosage: 6 DF, OTHER
  9. ATENOLOL [Concomitant]
     Dosage: UNK, QD
  10. ANABOLIC STEROIDS [Concomitant]
  11. FORTEO [Suspect]
     Indication: OSTEOPOROSIS
     Dosage: 20 UG, QD
     Route: 065
     Dates: start: 20110901
  12. OXYCODONE HCL [Concomitant]
     Dosage: UNK, AS NEEDED BID
  13. FORTEO [Suspect]
     Dosage: 20 UG, QD
     Route: 065

REACTIONS (10)
  - SPINAL FRACTURE [None]
  - MYOCARDIAL INFARCTION [None]
  - OXYGEN SATURATION DECREASED [None]
  - MUSCULOSKELETAL PAIN [None]
  - CONFUSIONAL STATE [None]
  - MULTIPLE FRACTURES [None]
  - DYSPHONIA [None]
  - INJECTION SITE HAEMATOMA [None]
  - HYPERSENSITIVITY [None]
  - BACK DISORDER [None]
